FAERS Safety Report 6013442-8 (Version None)
Quarter: 2008Q4

REPORT INFORMATION
  Report Type: 
  Country: None (occurrence: None)
  Receive Date: 20081219
  Receipt Date: 20081208
  Transmission Date: 20090506
  Serious: Yes (Hospitalization)
  Sender: FDA-Public Use
  Company Number: DE-PFIZER INC-2007020689

PATIENT

DRUGS (3)
  1. SUNITINIB MALATE [Suspect]
     Indication: NON-SMALL CELL LUNG CANCER
     Dosage: 37.5 MG, DAILY, DAY 1-14
     Route: 048
     Dates: start: 20061222, end: 20070306
  2. GEMCITABINE [Suspect]
     Indication: NON-SMALL CELL LUNG CANCER
     Dosage: 2050 MG, DAY 1 AND 8
     Route: 042
     Dates: start: 20061220
  3. CISPLATIN [Suspect]
     Indication: NON-SMALL CELL LUNG CANCER
     Dosage: 131.2 MG, DAY 1
     Route: 042
     Dates: start: 20061220

REACTIONS (3)
  - ATRIAL THROMBOSIS [None]
  - PULMONARY EMBOLISM [None]
  - THROMBOSIS [None]
